FAERS Safety Report 8098537 (Version 2)
Quarter: 2013Q4

REPORT INFORMATION
  Report Type: Spontaneous
  Country: US (occurrence: None)
  Receive Date: 20100909
  Receipt Date: 20131119
  Transmission Date: 20140711
  Serious: Yes (Other)
  Sender: FDA-Public Use
  Company Number: 20100410

PATIENT
  Age: 48 Year
  Sex: Female

DRUGS (3)
  1. METHYLENE BLUE [Suspect]
     Indication: DIAGNOSTIC PROCEDURE
     Dosage: 3 MG/KG IN 500ML NSS, INTRAVENOUS
     Route: 042
  2. FLUOXETINE [Concomitant]
  3. ONDANSETRON [Concomitant]

REACTIONS (1)
  - Encephalopathy [None]
